APPROVED DRUG PRODUCT: FLUTICASONE PROPIONATE
Active Ingredient: FLUTICASONE PROPIONATE
Strength: 0.05%
Dosage Form/Route: CREAM;TOPICAL
Application: A076865 | Product #001
Applicant: NESHER PHARMACEUTICALS USA LLC
Approved: Sep 10, 2004 | RLD: No | RS: No | Type: DISCN